FAERS Safety Report 5134838-2 (Version None)
Quarter: 2006Q4

REPORT INFORMATION
  Report Type: 
  Country: None (occurrence: None)
  Receive Date: 20061025
  Receipt Date: 20061018
  Transmission Date: 20070319
  Serious: Yes (Other)
  Sender: FDA-Public Use
  Company Number: 2006AP04967

PATIENT
  Age: 67 Year
  Sex: Female

DRUGS (1)
  1. ZESTRIL [Suspect]
     Route: 048
     Dates: start: 20050801, end: 20050901

REACTIONS (1)
  - DRUG ERUPTION [None]
